FAERS Safety Report 8361895-2 (Version None)
Quarter: 2012Q2

REPORT INFORMATION
  Report Type: 
  Country: None (occurrence: None)
  Receive Date: 20120515
  Receipt Date: 20120510
  Transmission Date: 20120825
  Serious: Yes (Hospitalization, Other)
  Sender: FDA-Public Use
  Company Number: ES-PFIZER INC-2012111581

PATIENT
  Age: 54 Year
  Sex: Female
  Weight: 75 kg

DRUGS (5)
  1. QUETIAPINE [Concomitant]
     Dosage: 200 MG, 1X/DAY
     Route: 048
     Dates: start: 20111201
  2. VALPROIC ACID [Concomitant]
     Dosage: 1000 MG, 1X/DAY
     Route: 048
     Dates: start: 20090901
  3. LYRICA [Suspect]
     Indication: ANXIETY
     Dosage: 300 MG, 1X/DAY
     Route: 048
     Dates: start: 20080201, end: 20120220
  4. DULOXETINE [Concomitant]
     Dosage: 120 MG, 1X/DAY
     Route: 048
     Dates: end: 20120201
  5. CLONAZEPAM [Concomitant]
     Dosage: 6 MG, 1X/DAY
     Route: 048

REACTIONS (2)
  - BIPOLAR DISORDER [None]
  - THROMBOCYTOPENIA [None]
